FAERS Safety Report 20146816 (Version 1)
Quarter: 2021Q4

REPORT INFORMATION
  Report Type: Spontaneous
  Country: US (occurrence: US)
  Receive Date: 20211203
  Receipt Date: 20211203
  Transmission Date: 20220303
  Serious: Yes (Other)
  Sender: FDA-Public Use
  Company Number: US-TEVA-2021-US-1983370

PATIENT

DRUGS (2)
  1. DIAZEPAM [Suspect]
     Active Substance: DIAZEPAM
     Indication: Product used for unknown indication
     Dosage: 15 MILLIGRAM DAILY; STARTED 3 YEARS AGO
     Route: 065
  2. BUPRENORPHINE [Concomitant]
     Active Substance: BUPRENORPHINE
     Dosage: 8MG/2MG 2 1/2 STRIPS PER DAY 75 STRIPS MONTHLY

REACTIONS (3)
  - Near death experience [Unknown]
  - Treatment noncompliance [Unknown]
  - Insurance issue [Unknown]

NARRATIVE: CASE EVENT DATE: 20211001
